FAERS Safety Report 15255760 (Version 1)
Quarter: 2018Q3

REPORT INFORMATION
  Report Type: Spontaneous
  Country: US (occurrence: US)
  Receive Date: 20180717
  Receipt Date: 20180717
  Transmission Date: 20181010
  Serious: Yes (Disabling)
  Sender: FDA-Public Use
  Company Number: None

PATIENT
  Age: 77 Year
  Sex: Female
  Weight: 70.31 kg

DRUGS (23)
  1. VITAMIN D [Concomitant]
     Active Substance: CHOLECALCIFEROL
  2. ACTIVATED CHARCOAL [Concomitant]
     Active Substance: ACTIVATED CHARCOAL
  3. VITAMIN D3 [Concomitant]
     Active Substance: CHOLECALCIFEROL
  4. ALOE [Concomitant]
     Active Substance: ALOE
  5. CHROMIUM PICOLINATE [Concomitant]
     Active Substance: CHROMIUM PICOLINATE
  6. METOPROLOL SUCC ER 50MG [Concomitant]
  7. FLUTICASONE. [Concomitant]
     Active Substance: FLUTICASONE
  8. VAGISIL ANTI ITCH ORIGINAL STRENGTH [Concomitant]
     Active Substance: BENZOCAINE\RESORCINOL
  9. BLACK CURRENT OIL [Concomitant]
  10. BENADRYL [Concomitant]
     Active Substance: DIPHENHYDRAMINE HYDROCHLORIDE
  11. MELATONIN [Concomitant]
     Active Substance: MELATONIN
  12. VOLTAREN TOPICAL [Concomitant]
  13. ANTI?GAS ENZYME [Concomitant]
  14. LACTOBACILLUS GASSERI [Concomitant]
  15. EYE LUBRICANT DROPS?OINTMENT [Concomitant]
  16. SLIPPERY ELM [Concomitant]
     Active Substance: ELM
  17. ZINC CITRATE [Concomitant]
     Active Substance: ZINC CITRATE
  18. MAGNESIUM CITRATE. [Concomitant]
     Active Substance: MAGNESIUM CITRATE
  19. VITAMIN A [Concomitant]
     Active Substance: VITAMIN A
  20. VITAMIN E [Concomitant]
     Active Substance: .ALPHA.-TOCOPHEROL
  21. POTASSIUM [Concomitant]
     Active Substance: POTASSIUM
  22. ROSUVASTATIN. [Suspect]
     Active Substance: ROSUVASTATIN
     Indication: BLOOD CHOLESTEROL INCREASED
     Dosage: ?          QUANTITY:1 DF DOSAGE FORM;OTHER FREQUENCY:5X WEEK;?
     Route: 048
     Dates: start: 20171205, end: 20180415
  23. EFA^S [Concomitant]

REACTIONS (5)
  - Pain in extremity [None]
  - Tenderness [None]
  - Ocular hyperaemia [None]
  - Swelling [None]
  - Bone pain [None]

NARRATIVE: CASE EVENT DATE: 20180326
